FAERS Safety Report 4724583-7 (Version None)
Quarter: 2005Q3

REPORT INFORMATION
  Report Type: 
  Country: None (occurrence: None)
  Receive Date: 20050726
  Receipt Date: 20050718
  Transmission Date: 20060218
  Serious: Yes (Hospitalization)
  Sender: FDA-Public Use
  Company Number: ES-JNJFOC-20050607103

PATIENT
  Sex: Female
  Weight: 61 kg

DRUGS (20)
  1. DURAGESIC-100 [Suspect]
     Route: 062
  2. DURAGESIC-100 [Suspect]
     Indication: CANCER PAIN
     Route: 062
  3. XELODA [Concomitant]
     Route: 065
  4. VINORELBINE [Concomitant]
     Route: 065
  5. NOLOTIL [Concomitant]
     Route: 065
  6. NOLOTIL [Concomitant]
     Route: 065
  7. REXER [Concomitant]
     Dosage: HALF A NIGHT.
     Route: 065
  8. TORADOL [Concomitant]
     Route: 065
  9. MORPHIC CLORURE [Concomitant]
     Route: 065
  10. NEOBRUFEN/SERACTIL [Concomitant]
     Route: 065
  11. DEZACORT [Concomitant]
     Route: 065
  12. OMEPRAZOLE [Concomitant]
     Route: 048
  13. IRUXOL [Concomitant]
     Route: 065
  14. IRUXOL [Concomitant]
     Route: 065
  15. IRUXOL [Concomitant]
     Route: 065
  16. BACTROBAN [Concomitant]
     Route: 065
  17. TURGRASUM CICATRIZAN [Concomitant]
     Route: 065
  18. CLEXANE [Concomitant]
     Route: 058
  19. POLARAMINE [Concomitant]
     Route: 048
  20. CALCIUM GLUCONATE [Concomitant]
     Route: 048

REACTIONS (1)
  - LEUKOCYTOCLASTIC VASCULITIS [None]
